FAERS Safety Report 11923233 (Version 1)
Quarter: 2016Q1

REPORT INFORMATION
  Report Type: Report from Study
  Country: IL (occurrence: IL)
  Receive Date: 20160118
  Receipt Date: 20160118
  Transmission Date: 20160526
  Serious: Yes (Other)
  Sender: FDA-Public Use
  Company Number: IL-ROCHE-1692936

PATIENT

DRUGS (4)
  1. CARBOPLATIN. [Suspect]
     Active Substance: CARBOPLATIN
     Indication: GLIOBLASTOMA
     Route: 065
  2. BEVACIZUMAB [Suspect]
     Active Substance: BEVACIZUMAB
     Indication: GLIOBLASTOMA
     Dosage: 5 MG/KG TO 87 PATIENTS AND 10 MG/KG TO 75 PATIENTS
     Route: 042
  3. TEMOZOLOMIDE. [Suspect]
     Active Substance: TEMOZOLOMIDE
     Indication: GLIOBLASTOMA
     Route: 065
  4. IRINOTECAN [Suspect]
     Active Substance: IRINOTECAN
     Indication: GLIOBLASTOMA
     Route: 065

REACTIONS (24)
  - Cerebrovascular accident [Unknown]
  - Abscess [Unknown]
  - Wound infection [Unknown]
  - Diarrhoea [Unknown]
  - Leukopenia [Unknown]
  - Deep vein thrombosis [Unknown]
  - Hepatitis C [Unknown]
  - Pruritus [Unknown]
  - Rash [Unknown]
  - Tumour haemorrhage [Unknown]
  - Pyrexia [Unknown]
  - Pulmonary embolism [Unknown]
  - Tremor [Unknown]
  - Rectal haemorrhage [Unknown]
  - Proteinuria [Unknown]
  - Cerebrospinal fluid leakage [Unknown]
  - Blindness [Unknown]
  - Nausea [Unknown]
  - Dehydration [Unknown]
  - Psychotic disorder [Unknown]
  - Epistaxis [Unknown]
  - Fatigue [Unknown]
  - Thrombocytopenia [Unknown]
  - Hypertension [Unknown]
